FAERS Safety Report 21184736 (Version 1)
Quarter: 2022Q3

REPORT INFORMATION
  Report Type: Spontaneous
  Country: US (occurrence: US)
  Receive Date: 20220808
  Receipt Date: 20220808
  Transmission Date: 20221027
  Serious: Yes (Death, Life-Threatening, Hospitalization)
  Sender: FDA-Public Use
  Company Number: US-Accord-271751

PATIENT
  Age: 4 Year
  Sex: Male
  Weight: 15.60 kg

DRUGS (2)
  1. ETOPOSIDE [Suspect]
     Active Substance: ETOPOSIDE
     Indication: Osteosarcoma metastatic
     Dosage: 64 MG, CYCLICAL
     Route: 042
     Dates: start: 20211021, end: 20211203
  2. IFOSFAMIDE [Suspect]
     Active Substance: IFOSFAMIDE
     Indication: Osteosarcoma metastatic
     Dosage: 1925 MG, CYCLICAL
     Route: 042
     Dates: start: 20211021, end: 20211203

REACTIONS (4)
  - Malignant neoplasm progression [Fatal]
  - Malignant pleural effusion [Not Recovered/Not Resolved]
  - Drug hypersensitivity [Recovered/Resolved]
  - Off label use [Unknown]

NARRATIVE: CASE EVENT DATE: 20211203
